FAERS Safety Report 4423712-2 (Version None)
Quarter: 2004Q3

REPORT INFORMATION
  Report Type: 
  Country: None (occurrence: None)
  Receive Date: 20040805
  Receipt Date: 20040721
  Transmission Date: 20050211
  Serious: Yes (Hospitalization, Other)
  Sender: FDA-Public Use
  Company Number: 2004-0007299

PATIENT
  Age: 45 Year
  Sex: Male

DRUGS (1)
  1. HEPSERA [Suspect]
     Indication: HEPATITIS B
     Dosage: 10 MG, 1 IN 1 D, ORAL
     Route: 048
     Dates: start: 20021215

REACTIONS (5)
  - DELUSIONAL DISORDER, PERSECUTORY TYPE [None]
  - DEPRESSION [None]
  - HALLUCINATION, VISUAL [None]
  - PSYCHOTIC DISORDER [None]
  - SLEEP DISORDER [None]
